FAERS Safety Report 8221123-5 (Version None)
Quarter: 2012Q1

REPORT INFORMATION
  Report Type: 
  Country: None (occurrence: None)
  Receive Date: 20120320
  Receipt Date: 20120316
  Transmission Date: 20120608
  Serious: Yes (Other)
  Sender: FDA-Public Use
  Company Number: US-BAYER-2012-026749

PATIENT
  Sex: Female

DRUGS (1)
  1. GADAVIST [Suspect]
     Indication: SCAN BRAIN
     Dosage: 10.5 ML, ONCE
     Route: 042

REACTIONS (4)
  - RASH [None]
  - URTICARIA [None]
  - PRURITUS [None]
  - PHARYNGEAL OEDEMA [None]
